FAERS Safety Report 12711393 (Version 4)
Quarter: 2016Q4

REPORT INFORMATION
  Report Type: Spontaneous
  Country: US (occurrence: US)
  Receive Date: 20160902
  Receipt Date: 20161221
  Transmission Date: 20170207
  Serious: Yes (Hospitalization)
  Sender: FDA-Public Use
  Company Number: US-PFIZER INC-2016413526

PATIENT
  Age: 66 Year
  Sex: Male
  Weight: 96.15 kg

DRUGS (3)
  1. OXYCODONE [Concomitant]
     Active Substance: OXYCODONE
     Indication: PAIN
     Dosage: 5 MG, UNK
     Dates: start: 20160105
  2. SUTENT [Suspect]
     Active Substance: SUNITINIB MALATE
     Indication: NEOPLASM MALIGNANT
     Dosage: UNK, 1X/DAY
  3. SUTENT [Suspect]
     Active Substance: SUNITINIB MALATE
     Indication: RENAL CANCER METASTATIC
     Dosage: 50 MG, CYCLIC (28 DAYS ON/14 DAYS OFF)
     Dates: start: 20160817, end: 20160901

REACTIONS (21)
  - Feeding disorder [Recovered/Resolved]
  - Facial pain [Unknown]
  - Ageusia [Not Recovered/Not Resolved]
  - Renal cancer metastatic [Not Recovered/Not Resolved]
  - Pain [Recovered/Resolved]
  - Thyroid function test abnormal [Unknown]
  - External ear pain [Recovered/Resolved]
  - Dysphagia [Recovered/Resolved]
  - Oropharyngeal pain [Recovered/Resolved]
  - Insomnia [Recovered/Resolved]
  - Arthralgia [Recovered/Resolved]
  - Oral pain [Recovered/Resolved]
  - Lip pain [Recovered/Resolved]
  - Nasal discomfort [Unknown]
  - Asthenia [Unknown]
  - Disease progression [Not Recovered/Not Resolved]
  - Erythema [Recovered/Resolved]
  - Myalgia [Unknown]
  - Fatigue [Recovered/Resolved]
  - Feeling abnormal [Recovered/Resolved]
  - Pain in extremity [Unknown]

NARRATIVE: CASE EVENT DATE: 2016
